FAERS Safety Report 7911324-5 (Version None)
Quarter: 2011Q4

REPORT INFORMATION
  Report Type: 
  Country: None (occurrence: None)
  Receive Date: 20111114
  Receipt Date: 20111103
  Transmission Date: 20120403
  Serious: Yes (Hospitalization, Other)
  Sender: FDA-Public Use
  Company Number: US-ELI_LILLY_AND_COMPANY-US201111001541

PATIENT
  Sex: Male
  Weight: 110.66 kg

DRUGS (15)
  1. LYRICA [Concomitant]
     Indication: NEUROPATHY PERIPHERAL
     Dosage: 75 MG, TID
     Route: 048
  2. AMIDARONE [Concomitant]
     Indication: CARDIAC DISORDER
     Dosage: 200 MG, QD
     Route: 048
     Dates: start: 20111031
  3. LASIX [Concomitant]
     Indication: HYPERTENSION
     Dosage: 40 MG, QD
     Route: 048
  4. BYETTA [Suspect]
     Dosage: 10 UG, BID
     Route: 058
  5. BYETTA [Suspect]
     Dosage: 10 UG, BID
     Route: 058
     Dates: start: 20111031
  6. LANTUS [Concomitant]
     Indication: TYPE 2 DIABETES MELLITUS
     Dosage: UNK
     Dates: start: 20111031
  7. AMBIEN [Concomitant]
     Indication: SLEEP DISORDER
     Dosage: 10 MG, EACH EVENING
     Route: 048
  8. BENICAR [Concomitant]
     Indication: HYPERTENSION
     Dosage: UNK
     Dates: end: 20111031
  9. BYETTA [Suspect]
     Indication: TYPE 2 DIABETES MELLITUS
     Dosage: 5 UG, QD
     Route: 058
     Dates: start: 20050101
  10. METOPROLOL [Concomitant]
     Indication: HYPERTENSION
     Dosage: 25 MG, QD
     Route: 048
  11. ASPIRIN [Concomitant]
     Dosage: 81 MG, QD
     Route: 048
  12. TRICOR [Concomitant]
     Indication: BLOOD CHOLESTEROL INCREASED
     Dosage: UNK
     Dates: end: 20111031
  13. BYETTA [Suspect]
     Dosage: 10 UG, QD
     Route: 058
  14. HUMALOG [Concomitant]
     Indication: TYPE 2 DIABETES MELLITUS
     Dosage: UNK
     Dates: start: 20111031
  15. LIPITOR [Concomitant]
     Indication: BLOOD CHOLESTEROL INCREASED
     Dosage: 40 MG, QD
     Route: 048

REACTIONS (16)
  - DIARRHOEA [None]
  - MYOCARDIAL INFARCTION [None]
  - BACTERIAL INFECTION [None]
  - PYREXIA [None]
  - HYPERHIDROSIS [None]
  - PALPITATIONS [None]
  - OFF LABEL USE [None]
  - HYPOPHAGIA [None]
  - VOMITING [None]
  - BLOOD GLUCOSE DECREASED [None]
  - NERVOUSNESS [None]
  - FATIGUE [None]
  - WEIGHT DECREASED [None]
  - DEHYDRATION [None]
  - BLOOD GLUCOSE INCREASED [None]
  - INAPPROPRIATE SCHEDULE OF DRUG ADMINISTRATION [None]
